FAERS Safety Report 5977582-1 (Version None)
Quarter: 2008Q4

REPORT INFORMATION
  Report Type: 
  Country: None (occurrence: None)
  Receive Date: 20081201
  Receipt Date: 20081201
  Transmission Date: 20090506
  Serious: Yes (Other)
  Sender: FDA-Public Use
  Company Number: None

PATIENT
  Age: 76 Year
  Sex: Male
  Weight: 95.2554 kg

DRUGS (2)
  1. ENALAPRIL MALEATE [Suspect]
     Indication: HYPERTENSION
     Dosage: 20 MG 1 TIME PER DAY PO
     Route: 048
     Dates: start: 20081111, end: 20081129
  2. FLU SHOT [Concomitant]

REACTIONS (3)
  - HERPES ZOSTER [None]
  - PERIORBITAL DISORDER [None]
  - TRIGEMINAL NERVE DISORDER [None]
